FAERS Safety Report 19135202 (Version 1)
Quarter: 2021Q2

REPORT INFORMATION
  Report Type: Spontaneous
  Country: DE (occurrence: DE)
  Receive Date: 20210414
  Receipt Date: 20210414
  Transmission Date: 20210717
  Serious: Yes (Hospitalization)
  Sender: FDA-Public Use
  Company Number: DE-ETON PHARMACEUTICALS, INC-2021ETO000031

PATIENT
  Age: 14 Year
  Sex: Female
  Weight: 58 kg

DRUGS (6)
  1. TRUSOPT [Concomitant]
     Active Substance: DORZOLAMIDE HYDROCHLORIDE
     Indication: RETINAL DYSTROPHY
     Route: 065
  2. ALKINDI SPRINKLE [Suspect]
     Active Substance: HYDROCORTISONE
     Indication: ADRENAL INSUFFICIENCY
     Dosage: 10 MG, UNK
     Route: 065
  3. NATPARA (PARATHYROID HORMONE) [Suspect]
     Active Substance: PARATHYROID HORMONE
     Indication: HYPOPARATHYROIDISM
     Dosage: 25 ?G, QD
     Route: 058
     Dates: start: 20200817
  4. ASTONIN H [Concomitant]
     Indication: ADRENOCORTICAL INSUFFICIENCY ACUTE
     Route: 065
  5. CALCIUM [Concomitant]
     Active Substance: CALCIUM
     Indication: HYPOPARATHYROIDISM
     Dosage: 500 MG, QD
     Route: 048
  6. ROCALTROL [Concomitant]
     Active Substance: CALCITRIOL
     Indication: HYPOPARATHYROIDISM

REACTIONS (12)
  - Candida infection [Recovering/Resolving]
  - Restlessness [Not Recovered/Not Resolved]
  - Nausea [Not Recovered/Not Resolved]
  - Tachycardia [Recovered/Resolved]
  - Hypocalcaemia [Recovering/Resolving]
  - Chvostek^s sign [Recovered/Resolved]
  - Abdominal pain upper [Not Recovered/Not Resolved]
  - Blood calcium increased [Not Recovered/Not Resolved]
  - Diarrhoea [Recovering/Resolving]
  - Fatigue [Recovered/Resolved]
  - Discomfort [Recovered/Resolved]
  - Keratitis [Recovering/Resolving]

NARRATIVE: CASE EVENT DATE: 20200824
